FAERS Safety Report 10570782 (Version 2)
Quarter: 2014Q4

REPORT INFORMATION
  Report Type: Spontaneous
  Country: US (occurrence: US)
  Receive Date: 20141107
  Receipt Date: 20141226
  Transmission Date: 20150529
  Serious: Yes (Death, Hospitalization)
  Sender: FDA-Public Use
  Company Number: US-SA-2014SA148726

PATIENT
  Age: 79 Year
  Sex: Female
  Weight: 65.4 kg

DRUGS (10)
  1. LOPRESSOR [Concomitant]
     Active Substance: METOPROLOL TARTRATE
  2. FERRLECIT [Suspect]
     Active Substance: SODIUM FERRIC GLUCONATE COMPLEX
     Indication: BLOOD IRON DECREASED
     Dosage: DOSE:250 UNITS UNSPECIFIED.?INFUSION
     Route: 042
     Dates: start: 20141021, end: 20141021
  3. OMEPRAZOLE. [Concomitant]
     Active Substance: OMEPRAZOLE
  4. LISINOPRIL. [Concomitant]
     Active Substance: LISINOPRIL
  5. LASIX [Concomitant]
     Active Substance: FUROSEMIDE
  6. LEVOXYL [Concomitant]
     Active Substance: LEVOTHYROXINE SODIUM
  7. AMLODIPINE [Concomitant]
     Active Substance: AMLODIPINE BESYLATE
  8. POTASSIUM CHLORIDE. [Concomitant]
     Active Substance: POTASSIUM CHLORIDE
  9. BENAZEPRIL [Concomitant]
     Active Substance: BENAZEPRIL\BENAZEPRIL HYDROCHLORIDE
  10. PRAVASTATIN [Concomitant]
     Active Substance: PRAVASTATIN\PRAVASTATIN SODIUM
     Indication: BLOOD CHOLESTEROL INCREASED

REACTIONS (17)
  - Ischaemic hepatitis [Fatal]
  - Nausea [Fatal]
  - Faecal incontinence [Fatal]
  - Anaphylactic shock [Fatal]
  - Back pain [Unknown]
  - Arrhythmia [Fatal]
  - Vomiting [Fatal]
  - Abdominal pain [Not Recovered/Not Resolved]
  - Discomfort [Fatal]
  - Acute myocardial infarction [Fatal]
  - Pneumothorax [Fatal]
  - Dyspnoea [Fatal]
  - Breath sounds abnormal [Fatal]
  - Wheezing [Fatal]
  - Diarrhoea [Not Recovered/Not Resolved]
  - Hypotension [Not Recovered/Not Resolved]
  - Chest pain [Fatal]

NARRATIVE: CASE EVENT DATE: 20141021
